FAERS Safety Report 7782406-6 (Version None)
Quarter: 2011Q3

REPORT INFORMATION
  Report Type: 
  Country: None (occurrence: None)
  Receive Date: 20110927
  Receipt Date: 20110914
  Transmission Date: 20111222
  Serious: Yes (Other)
  Sender: FDA-Public Use
  Company Number: CA-ELI_LILLY_AND_COMPANY-CA200511000935

PATIENT
  Sex: Female

DRUGS (5)
  1. CITALOPRAM [Concomitant]
     Indication: AGITATION
     Dates: start: 20020219
  2. LEVOTHYROXINE SODIUM [Concomitant]
     Indication: HYPOTHYROIDISM
     Dosage: 150 UG, UNK
     Dates: start: 20020501
  3. ZYPREXA [Suspect]
     Dosage: 5 MG, QD
  4. CLONAZEPAM [Concomitant]
     Indication: AGITATION
     Dosage: 0.5 MG, AS NEEDED
     Dates: start: 20020301
  5. ZYPREXA [Suspect]
     Indication: AGITATION
     Dosage: 2.5 MG, QD
     Route: 048
     Dates: start: 20020301, end: 20020801

REACTIONS (5)
  - THYROID CANCER [None]
  - TYPE 1 DIABETES MELLITUS [None]
  - OFF LABEL USE [None]
  - HYPOTHYROIDISM [None]
  - DIABETES MELLITUS [None]
